FAERS Safety Report 24641528 (Version 4)
Quarter: 2025Q1

REPORT INFORMATION
  Report Type: Report from Study
  Country: CA (occurrence: CA)
  Receive Date: 20241120
  Receipt Date: 20250110
  Transmission Date: 20250409
  Serious: Yes (Other)
  Sender: OTSUKA
  Company Number: CA-OTSUKA-2023_018374

PATIENT
  Sex: Male

DRUGS (3)
  1. ARIPIPRAZOLE [Suspect]
     Active Substance: ARIPIPRAZOLE
     Indication: Anxiety
     Route: 030
  2. ARIPIPRAZOLE [Suspect]
     Active Substance: ARIPIPRAZOLE
     Route: 030
  3. ARIPIPRAZOLE [Suspect]
     Active Substance: ARIPIPRAZOLE
     Route: 030

REACTIONS (5)
  - Eating disorder [Not Recovered/Not Resolved]
  - Injection site nodule [Recovered/Resolved]
  - Product use in unapproved indication [Unknown]
  - Product availability issue [Unknown]
  - Inappropriate schedule of product administration [Unknown]
